FAERS Safety Report 9588219 (Version 1)
Quarter: 2013Q4

REPORT INFORMATION
  Report Type: Spontaneous
  Country: US (occurrence: US)
  Receive Date: 20131003
  Receipt Date: 20131003
  Transmission Date: 20140711
  Serious: No
  Sender: FDA-Public Use
  Company Number: US-AMGEN-USASP2012063080

PATIENT
  Age: 73 Year
  Sex: Male
  Weight: 70.3 kg

DRUGS (7)
  1. ENBREL [Suspect]
     Indication: RHEUMATOID ARTHRITIS
     Dosage: 50 MG, QWK
     Route: 058
  2. CLOPIDOGREL [Concomitant]
     Dosage: 75 MG, UNK
     Route: 048
  3. FOLIC ACID [Concomitant]
     Dosage: UNK
     Route: 048
  4. BISOPROLOL [Concomitant]
     Dosage: 10/6.25
     Route: 048
  5. LOVASTATIN [Concomitant]
     Dosage: 10 MG, UNK
     Route: 048
  6. ASPIRE [Concomitant]
     Dosage: 81 MG, UNK
     Route: 048
  7. LISINOPRIL ACTAVIS                 /00894001/ [Concomitant]
     Dosage: 20 MG, UNK
     Route: 048

REACTIONS (4)
  - Diplopia [Unknown]
  - Decreased appetite [Unknown]
  - Chills [Unknown]
  - Fatigue [Unknown]
